FAERS Safety Report 5827473-1 (Version None)
Quarter: 2008Q3

REPORT INFORMATION
  Report Type: 
  Country: None (occurrence: None)
  Receive Date: 20080730
  Receipt Date: 20080724
  Transmission Date: 20090109
  Serious: Yes (Other)
  Sender: FDA-Public Use
  Company Number: GB-WYE-G01802908

PATIENT
  Sex: Male
  Weight: 64 kg

DRUGS (3)
  1. TORISEL [Suspect]
     Indication: METASTATIC RENAL CELL CARCINOMA
     Route: 042
     Dates: start: 20080404, end: 20080625
  2. ZOLEDRONIC ACID [Concomitant]
     Indication: METASTATIC RENAL CELL CARCINOMA
     Route: 042
     Dates: start: 20070501
  3. CHLORPHENIRAMINE/HYDROCODONE [Concomitant]
     Route: 042

REACTIONS (2)
  - INFECTION [None]
  - PNEUMONITIS [None]
